APPROVED DRUG PRODUCT: RISEDRONATE SODIUM
Active Ingredient: RISEDRONATE SODIUM
Strength: 150MG
Dosage Form/Route: TABLET;ORAL
Application: A200477 | Product #005
Applicant: PHARMOBEDIENT CONSULTING LLC
Approved: Jun 10, 2014 | RLD: No | RS: No | Type: DISCN